FAERS Safety Report 22639070 (Version 1)
Quarter: 2023Q2

REPORT INFORMATION
  Report Type: Spontaneous
  Country: CN (occurrence: CN)
  Receive Date: 20230626
  Receipt Date: 20230626
  Transmission Date: 20230722
  Serious: Yes (Life-Threatening)
  Sender: FDA-Public Use
  Company Number: CN-BoehringerIngelheim-2023-BI-245233

PATIENT
  Age: 60 Year
  Sex: Male
  Weight: 60 kg

DRUGS (3)
  1. ALTEPLASE [Suspect]
     Active Substance: ALTEPLASE
     Indication: Thrombolysis
     Dosage: 5.4 MG WAS INTRAVENOUSLY INJECTED (1 MINUTE)
     Route: 042
     Dates: start: 20230614, end: 20230614
  2. ALTEPLASE [Suspect]
     Active Substance: ALTEPLASE
     Dosage: THE REMAINING 48.6 MG + NORMAL SALINE 51.4 ML WAS INTRAVENOUSLY INFUSED (1 HOUR)
     Route: 042
     Dates: start: 20230614, end: 20230614
  3. ALTEPLASE [Suspect]
     Active Substance: ALTEPLASE
     Route: 042
     Dates: start: 20230614, end: 20230614

REACTIONS (4)
  - Cardiac failure acute [Recovering/Resolving]
  - Dyspnoea [Recovering/Resolving]
  - Hyperhidrosis [Recovering/Resolving]
  - Oxygen saturation decreased [Recovering/Resolving]

NARRATIVE: CASE EVENT DATE: 20230614
